FAERS Safety Report 7212104-9 (Version None)
Quarter: 2010Q4

REPORT INFORMATION
  Report Type: 
  Country: None (occurrence: None)
  Receive Date: 20101227
  Receipt Date: 20101214
  Transmission Date: 20110411
  Serious: Yes (Disabling)
  Sender: FDA-Public Use
  Company Number: 023136

PATIENT
  Sex: Male
  Weight: 47.6 kg

DRUGS (12)
  1. KEPPRA [Suspect]
     Indication: EPILEPSY
     Dosage: (1000 MG BID, GASTRIC TUBE ORAL)
     Route: 048
     Dates: start: 20101118, end: 20101202
  2. KEPPRA [Suspect]
     Indication: HYDROCEPHALUS
     Dosage: (1000 MG BID, GASTRIC TUBE ORAL)
     Route: 048
     Dates: start: 20101118, end: 20101202
  3. LASIX [Concomitant]
  4. ALDACTONE [Concomitant]
  5. MADOPAR /00349201/ [Concomitant]
  6. COMTAN [Concomitant]
  7. DORNER [Concomitant]
  8. DEPAKENE /00228502/ [Concomitant]
  9. LAC B [Concomitant]
  10. GASMOTIN [Concomitant]
  11. TAKEPRON [Concomitant]
  12. ALFAROL [Concomitant]

REACTIONS (5)
  - BLOOD CALCIUM DECREASED [None]
  - BLOOD POTASSIUM DECREASED [None]
  - GASTROOESOPHAGEAL REFLUX DISEASE [None]
  - RENAL FAILURE [None]
  - SUBILEUS [None]
